FAERS Safety Report 13569313 (Version 1)
Quarter: 2017Q2

REPORT INFORMATION
  Report Type: Spontaneous
  Country: AU (occurrence: AU)
  Receive Date: 20170522
  Receipt Date: 20170522
  Transmission Date: 20170830
  Serious: Yes (Hospitalization)
  Sender: FDA-Public Use
  Company Number: AU-PFIZER INC-2017217809

PATIENT
  Age: 54 Year
  Sex: Male

DRUGS (1)
  1. LYRICA [Suspect]
     Active Substance: PREGABALIN
     Indication: CERVICAL SPINAL STENOSIS

REACTIONS (3)
  - Musculoskeletal stiffness [Recovered/Resolved]
  - Hypoaesthesia [Recovered/Resolved]
  - Eye pain [Recovered/Resolved]
